FAERS Safety Report 4268711-9 (Version None)
Quarter: 2004Q1

REPORT INFORMATION
  Report Type: 
  Country: None (occurrence: None)
  Receive Date: 20040112
  Receipt Date: 20040105
  Transmission Date: 20041129
  Serious: Yes (Other)
  Sender: FDA-Public Use
  Company Number: PHBS2004FR00504

PATIENT
  Age: 61 Year
  Sex: Male

DRUGS (10)
  1. CYCLOSPORINE [Suspect]
     Indication: RENAL TRANSPLANT
     Dosage: 7 MG/KG/D
     Dates: start: 19961001
  2. CYCLOSPORINE [Suspect]
     Dosage: 6 MG/KG/D
  3. ANTILYMPHOCYTE GLOBULIN [Concomitant]
     Indication: RENAL TRANSPLANT
     Dosage: 75 MG/D
     Dates: start: 19961001
  4. PREDNISOLONE [Suspect]
     Indication: RENAL TRANSPLANT
     Dosage: 1 MG/KG/D
     Dates: start: 19961001
  5. PREDNISOLONE [Suspect]
     Dosage: 15 MG/D
  6. AZATHIOPRINE [Suspect]
     Indication: RENAL TRANSPLANT
     Dosage: 75 MG/D
     Dates: start: 19961001
  7. AZATHIOPRINE [Suspect]
     Dosage: 25 MG/D
  8. SULFAMETHOXAZOLE + TRIMETHOPRIM [Concomitant]
  9. NICARDIPINE HCL [Concomitant]
  10. OMEPRAZOLE [Concomitant]

REACTIONS (8)
  - ANAEMIA [None]
  - CYTOMEGALOVIRUS VIRAEMIA [None]
  - ERYTHEMA INFECTIOSUM [None]
  - GRAFT DYSFUNCTION [None]
  - NEUTROPENIA [None]
  - PANCYTOPENIA [None]
  - THROMBOCYTOPENIA [None]
  - WHITE BLOOD CELL COUNT DECREASED [None]
